FAERS Safety Report 6127732-1 (Version None)
Quarter: 2009Q1

REPORT INFORMATION
  Report Type: 
  Country: None (occurrence: None)
  Receive Date: 20090319
  Receipt Date: 20090319
  Transmission Date: 20090719
  Serious: No
  Sender: FDA-Public Use
  Company Number: None

PATIENT
  Sex: Female
  Weight: 91.36 kg

DRUGS (12)
  1. ARICEPT [Suspect]
     Dosage: 10MG TABLET 10 MG QD ORAL
     Route: 048
     Dates: start: 20071102, end: 20090319
  2. ACETAZOLAMIDE [Concomitant]
  3. ALBUTEROL [Concomitant]
  4. BACLOFEN [Concomitant]
  5. COPAXONE (GLATIRAMER) [Concomitant]
  6. DETROL [Concomitant]
  7. LEVOXYL [Concomitant]
  8. LEXAPRO [Concomitant]
  9. NABUMETONE [Concomitant]
  10. REMERON [Concomitant]
  11. TRAZODONE HCL [Concomitant]
  12. ZESTRIL [Concomitant]

REACTIONS (1)
  - INCONTINENCE [None]
